FAERS Safety Report 9248780 (Version 1)
Quarter: 2013Q2

REPORT INFORMATION
  Report Type: Spontaneous
  Country: US (occurrence: US)
  Receive Date: 20130423
  Receipt Date: 20130423
  Transmission Date: 20140414
  Serious: Yes (Death)
  Sender: FDA-Public Use
  Company Number: US-ROCHE-1214637

PATIENT
  Age: 90 Year
  Sex: Male

DRUGS (1)
  1. ZELBORAF [Suspect]
     Indication: SKIN CANCER
     Dosage: THE LAST DOSE OF ZELBORAF WAS SHIPPED 3/13/2013.
     Route: 065

REACTIONS (1)
  - Self injurious behaviour [Fatal]
